FAERS Safety Report 10037987 (Version 1)
Quarter: 2014Q1

REPORT INFORMATION
  Report Type: Spontaneous
  Country: US (occurrence: None)
  Receive Date: 20140306
  Receipt Date: 20140306
  Transmission Date: 20141002
  Serious: Yes (Hospitalization)
  Sender: FDA-Public Use
  Company Number: 163-21880-13104485

PATIENT
  Age: 59 Year
  Sex: Female

DRUGS (7)
  1. REVLIMID [Suspect]
     Indication: PLASMA CELL MYELOMA
     Route: 048
     Dates: start: 20100216
  2. ACYCLOVIR (ACICLOVIR) (ACICLOVIR) [Concomitant]
  3. AMLODIPINE (AMLODIPINE) [Concomitant]
  4. CYMBALTA [Concomitant]
  5. DEXAMETHASONE [Concomitant]
  6. K TAB (POTASSIUM CHLORIDE) [Concomitant]
  7. OMEPRAZOLE [Concomitant]

REACTIONS (3)
  - Diverticulitis [None]
  - Diarrhoea [None]
  - Plasma cell myeloma [None]
